FAERS Safety Report 8806620 (Version 1)
Quarter: 2012Q4

REPORT INFORMATION
  Report Type: 
  Country: US (occurrence: US)
  Receive Date: 20120925
  Receipt Date: 20120925
  Transmission Date: 20130627
  Serious: Yes (Other)
  Sender: FDA-Public Use
  Company Number: US-009507513-1209USA008862

PATIENT
  Age: 42 Year
  Sex: Male

DRUGS (2)
  1. CLARITIN [Suspect]
     Dosage: UNK
     Route: 048
     Dates: start: 2012
  2. CELEXA [Concomitant]
     Indication: DEPRESSION

REACTIONS (3)
  - Convulsion [Recovered/Resolved]
  - Lethargy [Not Recovered/Not Resolved]
  - Dizziness [Not Recovered/Not Resolved]
